FAERS Safety Report 15761692 (Version 1)
Quarter: 2018Q4

REPORT INFORMATION
  Report Type: Spontaneous
  Country: US (occurrence: US)
  Receive Date: 20181207
  Receipt Date: 20181207
  Transmission Date: 20190205
  Serious: No
  Sender: FDA-Public Use
  Company Number: None

PATIENT

DRUGS (3)
  1. PAROXETINE HCI TABS [Suspect]
     Active Substance: PAROXETINE HYDROCHLORIDE
  2. METADATE CD [Suspect]
     Active Substance: METHYLPHENIDATE HYDROCHLORIDE
  3. FLUOXETINE SOLUTION [Suspect]
     Active Substance: FLUOXETINE HYDROCHLORIDE

REACTIONS (3)
  - Product substitution [None]
  - Drug ineffective [None]
  - Drug effect incomplete [None]
